APPROVED DRUG PRODUCT: TRIUMEQ
Active Ingredient: ABACAVIR SULFATE; DOLUTEGRAVIR SODIUM; LAMIVUDINE
Strength: EQ 600MG BASE;EQ 50MG BASE;300MG
Dosage Form/Route: TABLET;ORAL
Application: N205551 | Product #001
Applicant: VIIV HEALTHCARE CO
Approved: Aug 22, 2014 | RLD: Yes | RS: Yes | Type: RX

PATENTS:
Patent 9242986 | Expires: Dec 8, 2029
Patent 8129385 | Expires: Oct 5, 2027
Patent 8129385*PED | Expires: Apr 5, 2028
Patent 9242986*PED | Expires: Jun 8, 2030

EXCLUSIVITY:
Code: M-294 | Date: Jun 15, 2026
Code: PED | Date: Dec 15, 2026